FAERS Safety Report 7958350-8 (Version None)
Quarter: 2011Q4

REPORT INFORMATION
  Report Type: 
  Country: None (occurrence: None)
  Receive Date: 20111205
  Receipt Date: 20100531
  Transmission Date: 20120403
  Serious: Yes (Death, Hospitalization)
  Sender: FDA-Public Use
  Company Number: PHHY2010DE92345

PATIENT
  Sex: Male

DRUGS (3)
  1. EXJADE [Suspect]
     Indication: MYELODYSPLASTIC SYNDROME
     Dosage: UNK UKN, UNK
     Dates: start: 20071201
  2. PLATELETS [Concomitant]
     Dosage: UNK UKN, UNK
  3. RED BLOOD CELLS, CONCENTRATED [Concomitant]
     Dosage: UNK UKN, UNK

REACTIONS (2)
  - SEPTIC SHOCK [None]
  - POISONING [None]
